FAERS Safety Report 21623223 (Version 1)
Quarter: 2022Q4

REPORT INFORMATION
  Report Type: Spontaneous
  Country: US (occurrence: US)
  Receive Date: 20221121
  Receipt Date: 20221121
  Transmission Date: 20230113
  Serious: No
  Sender: FDA-Public Use
  Company Number: US-TAKEDA-2022TUS084945

PATIENT
  Sex: Female
  Weight: 68 kg

DRUGS (6)
  1. ROZEREM [Suspect]
     Active Substance: RAMELTEON
     Indication: Sleep disorder
     Dosage: 8 MILLIGRAM, QD
     Route: 065
  2. ROZEREM [Suspect]
     Active Substance: RAMELTEON
     Indication: Schizophrenia
     Dosage: 8 MILLIGRAM, BID
     Route: 065
  3. RAMELTEON [Suspect]
     Active Substance: RAMELTEON
     Indication: Product used for unknown indication
     Dosage: UNK
     Route: 065
  4. ZYPREXA [Concomitant]
     Active Substance: OLANZAPINE
     Indication: Sleep disorder
     Dosage: UNK
  5. ZYPREXA [Concomitant]
     Active Substance: OLANZAPINE
     Indication: Schizophrenia
  6. GABAPENTIN [Concomitant]
     Active Substance: GABAPENTIN
     Dosage: UNK

REACTIONS (4)
  - Feeling abnormal [Unknown]
  - Incorrect dose administered [Unknown]
  - Drug ineffective [Unknown]
  - Malaise [Unknown]
